FAERS Safety Report 7001399-2 (Version None)
Quarter: 2010Q3

REPORT INFORMATION
  Report Type: 
  Country: None (occurrence: None)
  Receive Date: 20100920
  Receipt Date: 20100309
  Transmission Date: 20110219
  Serious: No
  Sender: FDA-Public Use
  Company Number: US-ASTRAZENECA-2009SE19614

PATIENT
  Age: 722 Month
  Sex: Female
  Weight: 83.9 kg

DRUGS (1)
  1. SEROQUEL [Suspect]
     Indication: DEPRESSION
     Route: 048
     Dates: start: 20030101, end: 20090101

REACTIONS (2)
  - OBESITY [None]
  - TYPE 1 DIABETES MELLITUS [None]
